FAERS Safety Report 19031065 (Version 1)
Quarter: 2021Q1

REPORT INFORMATION
  Report Type: Spontaneous
  Country: JP (occurrence: JP)
  Receive Date: 20210319
  Receipt Date: 20210319
  Transmission Date: 20210420
  Serious: Yes (Other)
  Sender: FDA-Public Use
  Company Number: JP-BAYER-2021-092603

PATIENT
  Age: 77 Year
  Sex: Female

DRUGS (2)
  1. ADEMPAS [Suspect]
     Active Substance: RIOCIGUAT
  2. FRANDOL [Suspect]
     Active Substance: ISOSORBIDE DINITRATE
     Indication: BLOOD PRESSURE INCREASED

REACTIONS (3)
  - Pulmonary hypertension [None]
  - Contraindicated product prescribed [None]
  - Blood pressure increased [Unknown]
